FAERS Safety Report 7076571-6 (Version None)
Quarter: 2010Q4

REPORT INFORMATION
  Report Type: 
  Country: None (occurrence: None)
  Receive Date: 20101101
  Receipt Date: 20101020
  Transmission Date: 20110411
  Serious: No
  Sender: FDA-Public Use
  Company Number: JP-PFIZER INC-2010130852

PATIENT
  Age: 30 Year
  Sex: Female

DRUGS (2)
  1. CHAMPIX [Suspect]
     Dosage: 0.5 MG, 1X/DAY
     Route: 048
  2. CHAMPIX [Suspect]
     Dosage: 2 MG, UNK
     Route: 048
     Dates: start: 20101008, end: 20101014

REACTIONS (1)
  - NAUSEA [None]
